FAERS Safety Report 8021090-3 (Version None)
Quarter: 2012Q1

REPORT INFORMATION
  Report Type: 
  Country: None (occurrence: None)
  Receive Date: 20120104
  Receipt Date: 20111230
  Transmission Date: 20120608
  Serious: Yes (Other)
  Sender: FDA-Public Use
  Company Number: US-BAYER-2011-120131

PATIENT
  Sex: Female

DRUGS (2)
  1. BETASERON [Suspect]
     Indication: RELAPSING-REMITTING MULTIPLE SCLEROSIS
     Dosage: 2 MIU, UNK
     Route: 058
     Dates: start: 20111208
  2. IBUPROFEN [Concomitant]

REACTIONS (8)
  - CHILLS [None]
  - HYPERHIDROSIS [None]
  - ASTHENIA [None]
  - APHAGIA [None]
  - FATIGUE [None]
  - ABDOMINAL PAIN UPPER [None]
  - INSOMNIA [None]
  - HYPERSOMNIA [None]
